FAERS Safety Report 4510648-1 (Version None)
Quarter: 2004Q4

REPORT INFORMATION
  Report Type: 
  Country: None (occurrence: None)
  Receive Date: 20041122
  Receipt Date: 20041111
  Transmission Date: 20050328
  Serious: Yes (Hospitalization)
  Sender: FDA-Public Use
  Company Number: HQWYE391011NOV04

PATIENT
  Age: 84 Year
  Sex: Female

DRUGS (7)
  1. CORDARONE [Suspect]
     Indication: ATRIAL FIBRILLATION
     Dosage: 200 MG 1X PER 1 DAY, ORAL
     Route: 048
     Dates: start: 20040816, end: 20040921
  2. OMEPRAZOLE [Suspect]
     Indication: GASTRITIS
     Dosage: 10 MG 1X PER 1 DAY, ORAL
     Route: 048
     Dates: start: 20040816, end: 20040921
  3. OMEPRAZOLE [Suspect]
     Indication: GASTRODUODENITIS
     Dosage: 10 MG 1X PER 1 DAY, ORAL
     Route: 048
     Dates: start: 20040816, end: 20040921
  4. KARDEGIC (ACETYLSALICYLATE LYSINE0 [Concomitant]
  5. GLUCOPHAGE [Concomitant]
  6. LASIX [Concomitant]
  7. ALDACTONE [Concomitant]

REACTIONS (2)
  - ERYTHEMA MULTIFORME [None]
  - HYPERTHERMIA MALIGNANT [None]
